FAERS Safety Report 14577125 (Version 1)
Quarter: 2018Q1

REPORT INFORMATION
  Report Type: Spontaneous
  Country: US (occurrence: US)
  Receive Date: 20180225
  Receipt Date: 20180225
  Transmission Date: 20180509
  Serious: Yes (Other)
  Sender: FDA-Public Use
  Company Number: None

PATIENT
  Age: 67 Year
  Sex: Male

DRUGS (1)
  1. TESTOSTERONE CYPIONATE (DEPO-TESTOSTERONE GENERIC) [Suspect]
     Active Substance: TESTOSTERONE CYPIONATE
     Dosage: ?          OTHER FREQUENCY:EVERY WEEK;?
     Route: 030
     Dates: start: 20180225, end: 20180225

REACTIONS (3)
  - Myalgia [None]
  - Injection site pain [None]
  - Gait disturbance [None]

NARRATIVE: CASE EVENT DATE: 20180225
